FAERS Safety Report 8240133-5 (Version None)
Quarter: 2012Q1

REPORT INFORMATION
  Report Type: 
  Country: None (occurrence: None)
  Receive Date: 20120327
  Receipt Date: 20120327
  Transmission Date: 20120608
  Serious: Yes (Life-Threatening, Hospitalization, Disabling, Other)
  Sender: FDA-Public Use
  Company Number: None

PATIENT
  Age: 23 Year
  Sex: Female
  Weight: 116.5744 kg

DRUGS (1)
  1. DESOGESTREL AND ETHINYL ESTRADIOL [Suspect]
     Indication: CONTRACEPTION
     Dosage: 1 PILL / DAY
     Dates: start: 20120102, end: 20120202

REACTIONS (5)
  - FATIGUE [None]
  - PAIN [None]
  - DYSPNOEA [None]
  - CHEST PAIN [None]
  - PULMONARY THROMBOSIS [None]
